FAERS Safety Report 7319342-5 (Version None)
Quarter: 2011Q1

REPORT INFORMATION
  Report Type: 
  Country: None (occurrence: None)
  Receive Date: 20110228
  Receipt Date: 20100326
  Transmission Date: 20110831
  Serious: No
  Sender: FDA-Public Use
  Company Number: A0843495A

PATIENT
  Age: 54 Year
  Sex: Female

DRUGS (4)
  1. CARBATROL [Concomitant]
  2. ZOLOFT [Concomitant]
  3. ACCUPRIL [Concomitant]
  4. LAMICTAL [Suspect]
     Dosage: 700MG PER DAY
     Route: 048
     Dates: start: 20000101

REACTIONS (1)
  - DIZZINESS [None]
